FAERS Safety Report 10677667 (Version 1)
Quarter: 2014Q4

REPORT INFORMATION
  Report Type: Spontaneous
  Country: US (occurrence: US)
  Receive Date: 20141229
  Receipt Date: 20141229
  Transmission Date: 20150529
  Serious: Yes (Hospitalization, Other)
  Sender: FDA-Public Use
  Company Number: US-ABBVIE-14K-163-1325165-00

PATIENT
  Age: 40 Year
  Sex: Female

DRUGS (4)
  1. VEDOLIZUMAB [Suspect]
     Active Substance: VEDOLIZUMAB
     Route: 042
     Dates: start: 20141103, end: 20141103
  2. METHOTREXATE [Concomitant]
     Active Substance: METHOTREXATE
     Indication: PRODUCT USED FOR UNKNOWN INDICATION
     Dates: start: 201403
  3. HUMIRA [Suspect]
     Active Substance: ADALIMUMAB
     Indication: PRODUCT USED FOR UNKNOWN INDICATION
     Route: 065
     Dates: start: 201212, end: 20141010
  4. VEDOLIZUMAB [Suspect]
     Active Substance: VEDOLIZUMAB
     Indication: CROHN^S DISEASE
     Route: 042
     Dates: start: 20141020, end: 20141020

REACTIONS (11)
  - Thrombocytopenia [Recovering/Resolving]
  - Enterovirus test positive [Recovering/Resolving]
  - Human rhinovirus test positive [Recovering/Resolving]
  - Staphylococcal infection [Recovering/Resolving]
  - Histoplasmosis disseminated [Recovering/Resolving]
  - Blood alkaline phosphatase abnormal [Recovering/Resolving]
  - Peripheral swelling [Recovering/Resolving]
  - Serum ferritin abnormal [Recovering/Resolving]
  - Respiratory failure [Recovering/Resolving]
  - Malaise [Recovering/Resolving]
  - Heart rate irregular [Recovering/Resolving]

NARRATIVE: CASE EVENT DATE: 20141107
